FAERS Safety Report 10286370 (Version 1)
Quarter: 2014Q3

REPORT INFORMATION
  Report Type: Spontaneous
  Country: TR (occurrence: None)
  Receive Date: 20140707
  Receipt Date: 20140707
  Transmission Date: 20150326
  Serious: Yes (Other)
  Sender: FDA-Public Use
  Company Number: 2014TR00636

PATIENT
  Age: 24 Year
  Sex: Male

DRUGS (4)
  1. AZATHIOPRINE (AZATHIOPRINE) [Concomitant]
     Active Substance: AZATHIOPRINE
  2. ALENDRONATE (ALENDRONATE) TABLET [Suspect]
     Active Substance: ALENDRONATE SODIUM
     Indication: OSTEOPOROSIS
     Dosage: ONCE A WEEK
  3. CALCIUM/VITAMIN DC (CALCIUM/VITAMIN D3) [Concomitant]
  4. DEFLAZACORT (DEFLAZACORT) [Concomitant]

REACTIONS (1)
  - Myasthenia gravis [None]
